FAERS Safety Report 4787115-3 (Version None)
Quarter: 2005Q4

REPORT INFORMATION
  Report Type: 
  Country: None (occurrence: None)
  Receive Date: 20051004
  Receipt Date: 20050927
  Transmission Date: 20060501
  Serious: Yes (Other)
  Sender: FDA-Public Use
  Company Number: US-GLAXOSMITHKLINE-A0575972A

PATIENT
  Sex: Male

DRUGS (1)
  1. CITRUCEL CAPLETS [Suspect]
     Indication: CONSTIPATION
     Route: 048

REACTIONS (2)
  - FAECAL VOLUME INCREASED [None]
  - RECTAL HAEMORRHAGE [None]
